FAERS Safety Report 6619483-1 (Version None)
Quarter: 2010Q1

REPORT INFORMATION
  Report Type: 
  Country: None (occurrence: None)
  Receive Date: 20100309
  Receipt Date: 20100303
  Transmission Date: 20100710
  Serious: Yes (Death, Hospitalization)
  Sender: FDA-Public Use
  Company Number: IT-ELI_LILLY_AND_COMPANY-IT200907004100

PATIENT
  Sex: Female
  Weight: 72 kg

DRUGS (8)
  1. PEMETREXED [Suspect]
     Indication: NON-SMALL CELL LUNG CANCER
     Dosage: 500 MG/M2, ON DAY 1 EVERY 21 DAYS
     Route: 042
     Dates: start: 20090417, end: 20090619
  2. PEMETREXED [Suspect]
     Dosage: UNK, ONCE EVERY 21 DAYS
     Route: 042
     Dates: start: 20090710, end: 20090710
  3. CISPLATIN [Suspect]
     Indication: NON-SMALL CELL LUNG CANCER
     Dosage: 75 MG/M2, ON DAY 1 EVERY 21 DAYS
     Route: 042
     Dates: start: 20090417, end: 20090619
  4. FOLIC ACID [Concomitant]
     Indication: PROPHYLAXIS
     Dates: start: 20090410
  5. VITAMIN B-12 [Concomitant]
     Indication: PROPHYLAXIS
     Dates: start: 20090410
  6. DEXAMETHASONE [Concomitant]
     Indication: PROPHYLAXIS
     Dates: start: 20090709, end: 20090711
  7. OXYCONTIN [Concomitant]
     Indication: CHEST PAIN
     Dates: start: 20090711
  8. BISOPROLOL FUMARATE AND HYDROCHLOROTHIAZIDE [Concomitant]
     Indication: HYPERTENSION
     Dates: start: 20090508

REACTIONS (2)
  - CEREBRAL ISCHAEMIA [None]
  - MALIGNANT NEOPLASM PROGRESSION [None]
